FAERS Safety Report 8209944-6 (Version None)
Quarter: 2012Q1

REPORT INFORMATION
  Report Type: 
  Country: None (occurrence: None)
  Receive Date: 20120314
  Receipt Date: 20111102
  Transmission Date: 20120608
  Serious: No
  Sender: FDA-Public Use
  Company Number: US-ASTRAZENECA-2011SE66218

PATIENT
  Age: 77 Year
  Sex: Female
  Weight: 104.3 kg

DRUGS (1)
  1. METOPROLOL SUCCINATE [Suspect]
     Indication: HYPERTENSION
     Route: 048

REACTIONS (5)
  - BLOOD PRESSURE SYSTOLIC INCREASED [None]
  - SOMNOLENCE [None]
  - FATIGUE [None]
  - HEART RATE DECREASED [None]
  - MALAISE [None]
